FAERS Safety Report 23977818 (Version 1)
Quarter: 2024Q2

REPORT INFORMATION
  Report Type: Report from Study
  Country: ES (occurrence: ES)
  Receive Date: 20240614
  Receipt Date: 20240614
  Transmission Date: 20240716
  Serious: Yes (Hospitalization, Other)
  Sender: FDA-Public Use
  Company Number: ES-ABBVIE-5279727

PATIENT
  Age: 59 Year
  Sex: Female
  Weight: 75.5 kg

DRUGS (16)
  1. DOXORUBICIN [Suspect]
     Active Substance: DOXORUBICIN
     Indication: Non-Hodgkin^s lymphoma
     Dosage: 50 MG, TOTAL: DAY 1 OF EACH CYCLE
     Route: 042
     Dates: start: 20230516, end: 20230516
  2. CYCLOPHOSPHAMIDE [Suspect]
     Active Substance: CYCLOPHOSPHAMIDE
     Indication: Non-Hodgkin^s lymphoma
     Dosage: 750 MG/M2, DAY 1 OF EACH CYCLE
     Route: 042
     Dates: start: 20230516, end: 20240516
  3. RITUXIMAB [Suspect]
     Active Substance: RITUXIMAB
     Indication: Non-Hodgkin^s lymphoma
     Dosage: 375 MG/M2, TOTAL: DAY 1 OF EACH CYCLE
     Route: 042
     Dates: start: 20230516, end: 20230516
  4. EPCORITAMAB [Suspect]
     Active Substance: EPCORITAMAB
     Indication: Non-Hodgkin^s lymphoma
     Dosage: 0.16 MG, TOTAL: PRIMING DOSE C1, D1
     Route: 058
     Dates: start: 20230516, end: 20230516
  5. EPCORITAMAB [Suspect]
     Active Substance: EPCORITAMAB
     Dosage: 0.8 MG, TOTAL: INTERMEDIATE DOSE C1, D8
     Route: 058
     Dates: start: 20240523, end: 20240523
  6. POLATUZUMAB VEDOTIN [Suspect]
     Active Substance: POLATUZUMAB VEDOTIN
     Indication: Non-Hodgkin^s lymphoma
     Dosage: 1.8 MG/KG, TOTAL
     Route: 042
     Dates: start: 20230516, end: 20230516
  7. PREDNISONE [Suspect]
     Active Substance: PREDNISONE
     Dosage: 100 MG, EVERY 24 HOURS, DAYS 1 TO 5
     Route: 048
     Dates: start: 20230516
  8. VENETOCLAX [Suspect]
     Active Substance: VENETOCLAX
     Indication: Non-Hodgkin^s lymphoma
     Dosage: DRUG NOT ADMINISTERED
     Route: 065
  9. IBRUTINIB [Suspect]
     Active Substance: IBRUTINIB
     Indication: Non-Hodgkin^s lymphoma
     Dosage: DRUG NOT ADMINISTERED
     Route: 065
  10. Magnogene [Concomitant]
     Indication: Vitamin supplementation
     Dosage: 1 DOSAGE FORM, 0.33333333 DAYS
     Route: 048
     Dates: start: 20230511
  11. FLUOXETINE HYDROCHLORIDE [Concomitant]
     Active Substance: FLUOXETINE HYDROCHLORIDE
     Indication: Mixed anxiety and depressive disorder
     Dosage: 20 MG, EVERY DAY
     Route: 048
  12. FUROSEMIDE [Concomitant]
     Active Substance: FUROSEMIDE
     Indication: Hypercalcaemia
     Dosage: 40 MG, ONCE A DAY
     Route: 048
     Dates: start: 20230511
  13. RASBURICASE [Concomitant]
     Active Substance: RASBURICASE
     Indication: Premedication
     Dosage: 6 MG, EVERY DAY
     Route: 042
     Dates: start: 20230516, end: 20230516
  14. MELOXICAM [Concomitant]
     Active Substance: MELOXICAM
     Indication: Pain prophylaxis
     Dosage: UNK, AS NECESSARY
     Route: 048
  15. PIPERACILLIN [Concomitant]
     Active Substance: PIPERACILLIN
     Indication: Product used for unknown indication
     Dosage: 4 MG, EVERY 6 HOURS, TRADE NAME: PIPERACICLINE
     Route: 065
     Dates: start: 20240529
  16. LEVOTHYROXINE SODIUM [Concomitant]
     Active Substance: LEVOTHYROXINE SODIUM
     Indication: Hypothyroidism
     Dosage: 75 UG, EVERY DAY
     Route: 048

REACTIONS (1)
  - Cytokine release syndrome [Recovered/Resolved]

NARRATIVE: CASE EVENT DATE: 20230603
